FAERS Safety Report 9797196 (Version 1)
Quarter: 2014Q1

REPORT INFORMATION
  Report Type: Spontaneous
  Country: US (occurrence: None)
  Receive Date: 20140102
  Receipt Date: 20140102
  Transmission Date: 20141002
  Serious: Yes (Hospitalization)
  Sender: FDA-Public Use
  Company Number: None

PATIENT
  Age: 45 Year
  Sex: Female
  Weight: 79.38 kg

DRUGS (2)
  1. OXCARBAZEPINE [Suspect]
     Indication: TRIGEMINAL NEURALGIA
     Route: 048
     Dates: start: 20131204, end: 20131220
  2. OXCARBAZEPINE [Suspect]
     Indication: MYOCLONUS
     Route: 048
     Dates: start: 20131204, end: 20131220

REACTIONS (1)
  - Stevens-Johnson syndrome [None]
